FAERS Safety Report 6398186-5 (Version None)
Quarter: 2009Q3

REPORT INFORMATION
  Report Type: 
  Country: None (occurrence: None)
  Receive Date: 20090929
  Receipt Date: 20090929
  Transmission Date: 20100115
  Serious: Yes (Other)
  Sender: FDA-Public Use
  Company Number: 2009AA000899

PATIENT
  Age: 44 Year
  Sex: Female
  Weight: 80 kg

DRUGS (1)
  1. PHARMALGEN (802) VESPULA SPP. (PHARMALGEN (802) VESPULA SPP.) (100 UG/ [Suspect]

REACTIONS (1)
  - BREAST CANCER FEMALE [None]
